FAERS Safety Report 24013485 (Version 2)
Quarter: 2024Q3

REPORT INFORMATION
  Report Type: Report from Study
  Country: US (occurrence: US)
  Receive Date: 20240626
  Receipt Date: 20240716
  Transmission Date: 20241017
  Serious: Yes (Hospitalization, Disabling, Other)
  Sender: ROCHE
  Company Number: US-ROCHE-10000006956

PATIENT
  Age: 58 Year
  Sex: Female
  Weight: 77.11 kg

DRUGS (1)
  1. OCREVUS [Suspect]
     Active Substance: OCRELIZUMAB
     Indication: Relapsing-remitting multiple sclerosis
     Dosage: 300 MG SINGLE-USE VIAL
     Route: 042
     Dates: end: 202303

REACTIONS (6)
  - Illness [Unknown]
  - Pneumonia fungal [Recovered/Resolved]
  - Weight decreased [Recovered/Resolved]
  - Arthritis [Not Recovered/Not Resolved]
  - COVID-19 [Recovered/Resolved]
  - Dysstasia [Recovered/Resolved]

NARRATIVE: CASE EVENT DATE: 20230801
